FAERS Safety Report 12233372 (Version 1)
Quarter: 2016Q2

REPORT INFORMATION
  Report Type: Spontaneous
  Country: US (occurrence: US)
  Receive Date: 20160404
  Receipt Date: 20160404
  Transmission Date: 20160815
  Serious: No
  Sender: FDA-Public Use
  Company Number: US-STRIDES ARCOLAB LIMITED-2016SP001531

PATIENT

DRUGS (5)
  1. HYDROCORTISONE. [Concomitant]
     Active Substance: HYDROCORTISONE
     Indication: PULMONARY SARCOIDOSIS
     Dosage: UNK
     Route: 061
  2. IMIQUIMOD. [Suspect]
     Active Substance: IMIQUIMOD
     Indication: CUTANEOUS SARCOIDOSIS
     Dosage: UNK UNK, THRICE  A WEEK
     Route: 061
  3. HYDROXYCHLOROQUINE [Concomitant]
     Active Substance: HYDROXYCHLOROQUINE
     Indication: CUTANEOUS SARCOIDOSIS
     Dosage: 200 MG, BID
     Route: 048
  4. IMIQUIMOD. [Suspect]
     Active Substance: IMIQUIMOD
     Dosage: UNK UNK, ONCE A WEEK
     Route: 061
  5. HYDROCORTISONE. [Concomitant]
     Active Substance: HYDROCORTISONE
     Indication: RASH

REACTIONS (1)
  - Skin irritation [Unknown]
